FAERS Safety Report 5815979-0 (Version None)
Quarter: 2008Q3

REPORT INFORMATION
  Report Type: 
  Country: None (occurrence: None)
  Receive Date: 20080721
  Receipt Date: 20080709
  Transmission Date: 20090109
  Serious: Yes (Other)
  Sender: FDA-Public Use
  Company Number: PHBS2008ES05095

PATIENT
  Age: 74 Year
  Sex: Male

DRUGS (4)
  1. ZOLEDRONIC ACID [Suspect]
     Indication: PROSTATE CANCER
  2. DOCETAXEL [Concomitant]
  3. CHEMOTHERAPEUTICS NOS [Concomitant]
  4. CORTICOSTEROIDS [Concomitant]

REACTIONS (1)
  - OSTEONECROSIS [None]
